FAERS Safety Report 6188441-6 (Version None)
Quarter: 2009Q2

REPORT INFORMATION
  Report Type: 
  Country: None (occurrence: None)
  Receive Date: 20090513
  Receipt Date: 20090504
  Transmission Date: 20091009
  Serious: Yes (Other)
  Sender: FDA-Public Use
  Company Number: US-GENENTECH-281460

PATIENT
  Sex: Female

DRUGS (21)
  1. XOLAIR [Suspect]
     Indication: DRUG USE FOR UNKNOWN INDICATION
     Dosage: UNK
  2. OXYCODONE HCL [Concomitant]
     Indication: HEADACHE
     Dosage: 20 MG, UNK
     Route: 048
     Dates: start: 20080101
  3. OXYCODONE HCL [Concomitant]
     Indication: BACK PAIN
  4. LIDODERM [Concomitant]
     Indication: BACK PAIN
     Dosage: 5 UNK, QD
     Dates: start: 20080101
  5. LANTUS [Concomitant]
     Indication: DIABETES MELLITUS
     Dosage: 65 IU, QHS
     Route: 058
     Dates: start: 20080101
  6. LYRICA [Concomitant]
     Indication: DRUG USE FOR UNKNOWN INDICATION
     Dosage: 300 MG, BID
     Route: 048
     Dates: start: 20080101
  7. CARBAMAZEPINE [Concomitant]
     Indication: NEUROPATHY PERIPHERAL
     Dosage: 100 MG, UNK
     Route: 048
     Dates: start: 20090101
  8. ZYRTEC [Concomitant]
     Indication: RHINITIS ALLERGIC
     Dosage: 10 MG, QD
     Route: 048
     Dates: start: 20080101
  9. DIAZEPAM [Concomitant]
     Indication: DRUG USE FOR UNKNOWN INDICATION
     Dosage: 5 MG, QHS
     Route: 048
     Dates: start: 20080101
  10. DIAZEPAM [Concomitant]
     Dosage: 1 MG, QAM
     Dates: start: 20080101
  11. AMITRIPTLINE HYDROCHLORIDE TAB [Concomitant]
     Indication: DRUG USE FOR UNKNOWN INDICATION
     Dosage: 25 MG, UNK
     Route: 048
     Dates: start: 20080101
  12. ADVAIR HFA [Concomitant]
     Indication: ASTHMA
     Dosage: UNK
     Dates: start: 20090101
  13. VFEND [Concomitant]
     Indication: DRUG USE FOR UNKNOWN INDICATION
     Dosage: 200 MG, BID
     Dates: start: 20090301
  14. BYETTA [Concomitant]
     Indication: DIABETES MELLITUS
     Dosage: 10 MG, BID
     Dates: start: 20080101
  15. HUMALOG [Concomitant]
     Indication: DIABETES MELLITUS
     Dosage: UNK
     Route: 058
     Dates: start: 20080101
  16. ALTACE [Concomitant]
     Indication: HYPERTENSION
     Dosage: 2.5 MG, QD
     Route: 048
     Dates: start: 20080101
  17. EFFEXOR [Concomitant]
     Indication: DEPRESSION
     Dosage: 75 MG, BID
     Route: 048
     Dates: start: 20080101
  18. LAMOTRIGINE [Concomitant]
     Indication: DEPRESSION
     Dosage: 25 MG, QHS
     Dates: start: 20080101
  19. FOLGARD [Concomitant]
     Indication: DRUG USE FOR UNKNOWN INDICATION
     Dosage: 2.2 MG, QD
     Route: 048
     Dates: start: 20080101
  20. XOPENEX [Concomitant]
     Indication: ASTHMA
     Dosage: 2 PUFF, PRN
     Dates: start: 20080101
  21. ZOFRAN [Concomitant]
     Indication: NAUSEA
     Dosage: UNK
     Route: 048
     Dates: start: 20080101

REACTIONS (4)
  - DYSPNOEA [None]
  - FLUSHING [None]
  - HYPERSENSITIVITY [None]
  - SKIN BURNING SENSATION [None]
